FAERS Safety Report 14728349 (Version 5)
Quarter: 2019Q4

REPORT INFORMATION
  Report Type: Spontaneous
  Country: US (occurrence: US)
  Receive Date: 20180406
  Receipt Date: 20191216
  Transmission Date: 20200122
  Serious: Yes (Other)
  Sender: FDA-Public Use
  Company Number: US-PFIZER INC-2018135748

PATIENT
  Age: 80 Year
  Sex: Female

DRUGS (2)
  1. REVATIO [Suspect]
     Active Substance: SILDENAFIL CITRATE
     Indication: PULMONARY ARTERIAL HYPERTENSION
     Dosage: 0.5 DF, 3X/DAY
     Route: 048
  2. REVATIO [Suspect]
     Active Substance: SILDENAFIL CITRATE
     Dosage: 0.5 DF, 2X/DAY (TAKE 1/2 TABLET (10MG ) ORALLY 2 TIMES PER DAY)
     Route: 048

REACTIONS (2)
  - Off label use [Unknown]
  - Osteomyelitis [Unknown]

NARRATIVE: CASE EVENT DATE: 2017
